FAERS Safety Report 9149013 (Version 1)
Quarter: 2013Q1

REPORT INFORMATION
  Report Type: Spontaneous
  Country: US (occurrence: None)
  Receive Date: 20130228
  Receipt Date: 20130228
  Transmission Date: 20140127
  Serious: Yes (Other)
  Sender: FDA-Public Use
  Company Number: None

PATIENT
  Sex: Female

DRUGS (1)
  1. ZELBORAF 240MG [Suspect]
     Indication: MALIGNANT MELANOMA
     Dosage: 960MG  BID  PO
     Route: 048

REACTIONS (1)
  - Arthralgia [None]
